FAERS Safety Report 7634330-7 (Version None)
Quarter: 2011Q3

REPORT INFORMATION
  Report Type: 
  Country: None (occurrence: None)
  Receive Date: 20110725
  Receipt Date: 20101115
  Transmission Date: 20111222
  Serious: No
  Sender: FDA-Public Use
  Company Number: US-MYLANLABS-2010S1021121

PATIENT
  Age: 52 Year
  Sex: Female

DRUGS (3)
  1. BUSPIRONE HCL [Suspect]
     Indication: ANXIETY
     Route: 048
     Dates: start: 20101111
  2. XANAX [Concomitant]
     Indication: ANXIETY
     Route: 048
     Dates: start: 20100401
  3. ATENOLOL [Concomitant]
     Indication: PALPITATIONS
     Route: 048
     Dates: start: 20100401

REACTIONS (1)
  - VERTIGO [None]
